FAERS Safety Report 6075166-0 (Version None)
Quarter: 2009Q1

REPORT INFORMATION
  Report Type: 
  Country: None (occurrence: None)
  Receive Date: 20090212
  Receipt Date: 20090202
  Transmission Date: 20090719
  Serious: Yes (Death, Hospitalization)
  Sender: FDA-Public Use
  Company Number: US-ROCHE-595251

PATIENT
  Sex: Female
  Weight: 68 kg

DRUGS (1)
  1. CAPECITABINE [Suspect]
     Dosage: FREQUENCY: TWICE DAILY (MONDAY TO FRIDAY)
     Route: 048
     Dates: start: 20081013, end: 20081025

REACTIONS (2)
  - DIARRHOEA [None]
  - SEPTIC SHOCK [None]
